FAERS Safety Report 5236254-1 (Version None)
Quarter: 2007Q1

REPORT INFORMATION
  Report Type: 
  Country: None (occurrence: None)
  Receive Date: 20070212
  Receipt Date: 20070201
  Transmission Date: 20070707
  Serious: Yes (Hospitalization)
  Sender: FDA-Public Use
  Company Number: DE-SANOFI-SYNTHELABO-F01200700170

PATIENT
  Sex: Male

DRUGS (8)
  1. FLUPIRTINE GLUCONATE [Concomitant]
     Indication: OSTEOARTHRITIS
     Dates: end: 20061123
  2. AMLODIPINE BESYLATE [Concomitant]
     Indication: HYPERTENSION
     Dates: end: 20061123
  3. TORSEMIDE [Concomitant]
     Indication: HYPERTENSION
     Dates: end: 20061123
  4. MOLSIDOMINE [Concomitant]
     Indication: CORONARY ARTERY DISEASE
     Dates: end: 20061123
  5. BISOPROLOL FUMARATE [Concomitant]
     Indication: HYPERTENSION
     Dates: end: 20061123
  6. CANDESARTAN CILEXETIL/ HYDROCHLOROTHIAZIDE [Concomitant]
     Indication: HYPERTENSION
     Dates: end: 20061123
  7. ELIGARD [Suspect]
     Indication: PROSTATE CANCER
     Route: 058
     Dates: start: 20060524, end: 20060524
  8. BUNAZOSIN HYDROCHLORIDE [Concomitant]
     Indication: HYPERTENSION
     Dates: end: 20061123

REACTIONS (1)
  - SYNCOPE [None]
